FAERS Safety Report 13931776 (Version 1)
Quarter: 2017Q3

REPORT INFORMATION
  Report Type: Report from Study
  Country: None (occurrence: US)
  Receive Date: 20170904
  Receipt Date: 20170904
  Transmission Date: 20171127
  Serious: Yes (Other)
  Sender: FDA-Public Use
  Company Number: US-ABBVIE-17K-163-2086295-00

PATIENT
  Age: 65 Year
  Sex: Female

DRUGS (2)
  1. ZYRIM [Concomitant]
     Indication: RHEUMATOID ARTHRITIS
  2. HUMIRA [Suspect]
     Active Substance: ADALIMUMAB
     Indication: RHEUMATOID ARTHRITIS
     Route: 058
     Dates: start: 200202

REACTIONS (11)
  - Arthropathy [Not Recovered/Not Resolved]
  - Weight fluctuation [Not Recovered/Not Resolved]
  - Incorrect dose administered [Recovering/Resolving]
  - Wound [Recovered/Resolved]
  - Osteoporosis [Not Recovered/Not Resolved]
  - Injection site pain [Recovered/Resolved]
  - Rheumatoid arthritis [Recovered/Resolved]
  - Device issue [Unknown]
  - Asthenia [Not Recovered/Not Resolved]
  - Tendonitis [Not Recovered/Not Resolved]
  - Injection site haemorrhage [Recovered/Resolved]

NARRATIVE: CASE EVENT DATE: 20170827
